FAERS Safety Report 20768666 (Version 1)
Quarter: 2022Q2

REPORT INFORMATION
  Report Type: Spontaneous
  Country: US (occurrence: None)
  Receive Date: 20220428
  Receipt Date: 20220428
  Transmission Date: 20220720
  Serious: Yes (Other)
  Sender: FDA-Public Use
  Company Number: None

PATIENT
  Sex: Female

DRUGS (4)
  1. NEUTROGENA BEACH DEFENSE WATER PLUS SUN PROTECTION SUNSCREEN BROAD SPE [Suspect]
     Active Substance: AVOBENZONE\HOMOSALATE\OCTISALATE\OCTOCRYLENE\OXYBENZONE
     Indication: Prophylaxis against solar radiation
     Dosage: OTHER QUANTITY : 7 SPRAY(S);?OTHER FREQUENCY : EVERY 2 HRS.;?
     Route: 061
  2. NEUTROGENA INVISIBLE DAILY DEFENSE SUNSCREEN BROAD SPECTRUM SPF 30 [Suspect]
     Active Substance: AVOBENZONE\HOMOSALATE\OCTISALATE\OCTOCRYLENE
     Indication: Chronic cutaneous lupus erythematosus
     Dosage: OTHER FREQUENCY : EVERY 2 HOURS OR W;?
     Route: 061
  3. NEUTROGENA ULTRA SHEER BODY MIST SUNSCREEN BROAD SPECTRUM SPF 30 NOS [Suspect]
     Active Substance: AVOBENZONE\HOMOSALATE\OCTISALATE\OCTOCRYLENE OR AVOBENZONE\HOMOSALATE\OCTISALATE\OCTOCRYLENE\OXYBENZ
  4. AVEENO PROTECT PLUS REFRESH SUNSCREEN BROAD SPECTRUM BODY SPF 60 [Suspect]
     Active Substance: AVOBENZONE\HOMOSALATE\OCTISALATE\OCTOCRYLENE

REACTIONS (1)
  - Thermal burn [None]

NARRATIVE: CASE EVENT DATE: 20210715
